FAERS Safety Report 8595945-5 (Version None)
Quarter: 2012Q3

REPORT INFORMATION
  Report Type: 
  Country: None (occurrence: None)
  Receive Date: 20120815
  Receipt Date: 20120807
  Transmission Date: 20120928
  Serious: No
  Sender: FDA-Public Use
  Company Number: US-ASTRAZENECA-2009UW08562

PATIENT
  Age: 76 Year
  Sex: Female

DRUGS (9)
  1. SEROQUEL [Suspect]
     Route: 048
  2. NORVASC [Concomitant]
  3. SEROQUEL [Suspect]
     Dosage: GENERIC
     Route: 048
  4. LIBRAX [Concomitant]
  5. SEROQUEL [Suspect]
     Indication: ANXIETY
     Route: 048
  6. SEROQUEL [Suspect]
     Dosage: GENERIC
     Route: 048
  7. SYNTHROID [Concomitant]
  8. REMERON [Concomitant]
     Indication: INSOMNIA
  9. NEXIUM [Suspect]
     Route: 048

REACTIONS (5)
  - EATING DISORDER [None]
  - MALAISE [None]
  - NAUSEA [None]
  - URINARY INCONTINENCE [None]
  - ABDOMINAL DISCOMFORT [None]
